FAERS Safety Report 9321994 (Version 1)
Quarter: 2013Q2

REPORT INFORMATION
  Report Type: Report from Study
  Country: CA (occurrence: CA)
  Receive Date: 20130531
  Receipt Date: 20130531
  Transmission Date: 20140414
  Serious: Yes (Hospitalization, Other)
  Sender: FDA-Public Use
  Company Number: CA-JNJFOC-20130519144

PATIENT
  Age: 51 Year
  Sex: Male
  Weight: 93 kg

DRUGS (9)
  1. REMICADE [Suspect]
     Indication: CROHN^S DISEASE
     Route: 042
     Dates: start: 20130507
  2. REMICADE [Suspect]
     Indication: CROHN^S DISEASE
     Route: 042
     Dates: start: 20130523, end: 20130523
  3. REMICADE [Suspect]
     Indication: CROHN^S DISEASE
     Route: 042
     Dates: start: 2002, end: 2004
  4. BENADRYL [Concomitant]
     Indication: PREMEDICATION
     Route: 042
     Dates: start: 20130523
  5. SOLU CORTEF [Concomitant]
     Indication: PREMEDICATION
     Route: 042
     Dates: start: 20130523
  6. ASACOL [Concomitant]
     Route: 065
  7. SYNTHROID [Concomitant]
     Route: 065
  8. SEROQUEL [Concomitant]
     Route: 065
  9. STRATTERA [Concomitant]
     Route: 065

REACTIONS (5)
  - Pharyngeal oedema [Recovering/Resolving]
  - Erythema [Recovering/Resolving]
  - Swelling [Recovering/Resolving]
  - Infusion related reaction [Recovering/Resolving]
  - Arthritis [Recovered/Resolved]
